FAERS Safety Report 22621700 (Version 7)
Quarter: 2023Q4

REPORT INFORMATION
  Report Type: Report from Study
  Country: PL (occurrence: PL)
  Receive Date: 20230620
  Receipt Date: 20231020
  Transmission Date: 20240110
  Serious: Yes (Hospitalization)
  Sender: FDA-Public Use
  Company Number: PL-PFIZER INC-202300215057

PATIENT
  Age: 16 Year
  Sex: Male
  Weight: 44.7 kg

DRUGS (4)
  1. TOFACITINIB CITRATE [Suspect]
     Active Substance: TOFACITINIB CITRATE
     Indication: Colitis ulcerative
     Dosage: 5 MG, 2X/DAY
     Route: 048
     Dates: start: 20230102, end: 20230131
  2. TOFACITINIB CITRATE [Suspect]
     Active Substance: TOFACITINIB CITRATE
     Dosage: 5 MG, 3X/DAY
     Route: 048
     Dates: start: 20230201, end: 20230201
  3. TOFACITINIB CITRATE [Suspect]
     Active Substance: TOFACITINIB CITRATE
     Dosage: 5 MG, 4X/DAY
     Route: 048
     Dates: start: 20230202, end: 20230425
  4. TOFACITINIB CITRATE [Suspect]
     Active Substance: TOFACITINIB CITRATE
     Dosage: 5 MG, 2X/DAY
     Route: 048
     Dates: start: 20230426, end: 20230523

REACTIONS (1)
  - Thrombocytosis [Recovered/Resolved]

NARRATIVE: CASE EVENT DATE: 20230524
